FAERS Safety Report 23935105 (Version 1)
Quarter: 2024Q2

REPORT INFORMATION
  Report Type: Spontaneous
  Country: US (occurrence: US)
  Receive Date: 20240604
  Receipt Date: 20240604
  Transmission Date: 20240716
  Serious: No
  Sender: FDA-Public Use
  Company Number: US-SUN PHARMACEUTICAL INDUSTRIES LTD-2023R1-408263

PATIENT
  Sex: Female

DRUGS (1)
  1. BROMSITE [Suspect]
     Active Substance: BROMFENAC SODIUM
     Indication: Retinal detachment
     Dosage: UNK UNK, BID
     Route: 065

REACTIONS (4)
  - Product use issue [Unknown]
  - Device occlusion [Unknown]
  - Product contamination physical [Unknown]
  - Product dose omission issue [Unknown]
